FAERS Safety Report 18825310 (Version 10)
Quarter: 2022Q2

REPORT INFORMATION
  Report Type: Spontaneous
  Country: GB (occurrence: GB)
  Receive Date: 20210202
  Receipt Date: 20220630
  Transmission Date: 20220721
  Serious: Yes (Hospitalization, Other)
  Sender: FDA-Public Use
  Company Number: GB-MHRA-ADR 24501247

PATIENT
  Age: 40 Year
  Sex: Female

DRUGS (27)
  1. DOCETAXEL [Suspect]
     Active Substance: DOCETAXEL
     Indication: Breast cancer metastatic
     Dosage: 140 MG, QOW (ONCE IN 2 WEEKS)
     Route: 042
     Dates: start: 20160324, end: 20160526
  2. DOCETAXEL [Suspect]
     Active Substance: DOCETAXEL
     Indication: Breast cancer metastatic
     Dosage: 110 MG, QOW
     Route: 042
     Dates: start: 20160526, end: 20160707
  3. TAMOXIFEN CITRATE [Suspect]
     Active Substance: TAMOXIFEN CITRATE
     Indication: Breast cancer metastatic
     Dosage: 1 DF, QD
     Route: 048
     Dates: start: 201603
  4. TRASTUZUMAB [Suspect]
     Active Substance: TRASTUZUMAB
     Indication: Breast cancer metastatic
     Dosage: 651 MG, Q3W; LOADING DOSEPLANNED NUMBER OF CYCLES COMPLETED
     Route: 041
     Dates: start: 20160323, end: 20160323
  5. TRASTUZUMAB [Suspect]
     Active Substance: TRASTUZUMAB
     Dosage: 483 MG, Q3W; CYCLIC
     Route: 042
     Dates: start: 20160413
  6. PERTUZUMAB [Suspect]
     Active Substance: PERTUZUMAB
     Indication: Breast cancer metastatic
     Dosage: 840 MG, QD (LOADING DOSE:PLANNED NUMBER OF CYCLES COMPLETED)
     Route: 042
     Dates: start: 20160324, end: 20160324
  7. PERTUZUMAB [Suspect]
     Active Substance: PERTUZUMAB
     Dosage: 420 MG, Q3W
     Route: 042
     Dates: start: 20160413
  8. PERTUZUMAB [Suspect]
     Active Substance: PERTUZUMAB
     Dosage: 420 MG, Q3W
     Route: 042
     Dates: start: 20160413
  9. PERTUZUMAB [Suspect]
     Active Substance: PERTUZUMAB
     Dosage: 1260 MG, QW
     Route: 042
  10. CITALOPRAM [Concomitant]
     Active Substance: CITALOPRAM HYDROBROMIDE
     Indication: Thrombosis prophylaxis
     Dosage: 20 MG, QD
     Route: 048
     Dates: start: 201003
  11. DALTEPARIN [Concomitant]
     Active Substance: DALTEPARIN
     Indication: Thrombosis prophylaxis
     Dosage: 5000 IU, QD
     Route: 058
     Dates: start: 20160802, end: 20160809
  12. DALTEPARIN [Concomitant]
     Active Substance: DALTEPARIN
     Dosage: 7500 UNK, QD
     Route: 058
     Dates: start: 20170724
  13. DALTEPARIN [Concomitant]
     Active Substance: DALTEPARIN
     Dosage: UNK
     Route: 058
  14. DENOSUMAB [Concomitant]
     Active Substance: DENOSUMAB
     Indication: Breast cancer metastatic
     Dosage: 120 MG, Q4W (EVERY 28 DAYS)
     Route: 058
     Dates: start: 20160323
  15. DENOSUMAB [Concomitant]
     Active Substance: DENOSUMAB
     Indication: Metastases to bone
  16. DEXAMETHASONE [Concomitant]
     Active Substance: DEXAMETHASONE
     Indication: Metastases to bone
     Dosage: 20 MG, Q3W
     Route: 042
     Dates: start: 20160324
  17. DEXAMETHASONE [Concomitant]
     Active Substance: DEXAMETHASONE
     Indication: Breast cancer metastatic
     Dosage: 6 MG, Q3W
     Route: 042
     Dates: start: 20191113
  18. OMEPRAZOLE [Concomitant]
     Active Substance: OMEPRAZOLE
     Indication: Dyspepsia
     Dosage: 20 MG, QD
     Route: 048
     Dates: start: 20170727
  19. OMEPRAZOLE [Concomitant]
     Active Substance: OMEPRAZOLE
     Dosage: UNK
  20. TRAMADOL [Concomitant]
     Active Substance: TRAMADOL
     Dosage: 50 MG, QD
     Route: 048
     Dates: start: 20170724
  21. ACETAMINOPHEN [Concomitant]
     Active Substance: ACETAMINOPHEN
     Indication: Product used for unknown indication
     Dosage: 1000 MG, QID
     Route: 048
     Dates: start: 20170724
  22. ACETAMINOPHEN [Concomitant]
     Active Substance: ACETAMINOPHEN
     Dosage: UNK
  23. POTASSIUM CHLORIDE [Concomitant]
     Active Substance: POTASSIUM CHLORIDE
     Dosage: UNK UNK, BID
     Route: 048
     Dates: start: 20170724
  24. CEFTRIAXONE [Concomitant]
     Active Substance: CEFTRIAXONE
     Dosage: 2 MG, QD (INTRA CORPUS CAVERNOSUM )
     Dates: start: 20181128
  25. GENTAMICIN [Concomitant]
     Active Substance: GENTAMICIN
     Dosage: 5 MG/KG, QD
     Route: 042
     Dates: start: 20181128
  26. GLICLAZIDE [Concomitant]
     Active Substance: GLICLAZIDE
     Dosage: 30 MG, BID
     Route: 048
  27. PYRIDOXINE [Concomitant]
     Active Substance: PYRIDOXINE
     Indication: Infection
     Dosage: 1 DF, QD
     Route: 048
     Dates: start: 20160810

REACTIONS (9)
  - Joint stiffness [Recovered/Resolved]
  - Infection [Recovered/Resolved]
  - Influenza like illness [Recovered/Resolved]
  - Fatigue [Recovered/Resolved]
  - Diarrhoea [Not Recovered/Not Resolved]
  - Atrial thrombosis [Recovered/Resolved]
  - Atrophic vulvovaginitis [Recovered/Resolved]
  - Musculoskeletal stiffness [Recovered/Resolved]
  - Off label use [Unknown]

NARRATIVE: CASE EVENT DATE: 20160324
